FAERS Safety Report 9867525 (Version 2)
Quarter: 2014Q1

REPORT INFORMATION
  Report Type: Spontaneous
  Country: US (occurrence: US)
  Receive Date: 20140204
  Receipt Date: 20140204
  Transmission Date: 20141002
  Serious: No
  Sender: FDA-Public Use
  Company Number: US-GALDERMA-US13000842

PATIENT
  Age: 27 Year
  Sex: Female
  Weight: 61 kg

DRUGS (7)
  1. EPIDUO (ADAPALENE, BENZOYL PEROXIDE) GEL 0.1% / 2.5% [Suspect]
     Indication: ACNE
     Route: 061
     Dates: start: 20130306, end: 20130306
  2. SYNTHROID [Concomitant]
     Indication: HYPOTHYROIDISM
     Route: 048
  3. CETAPHIL GENTLE SKIN CLEANSER [Concomitant]
     Indication: THERAPEUTIC SKIN CARE TOPICAL
     Route: 061
  4. LOLOESTRIN [Concomitant]
  5. CALCIUM, VITAMIN D [Concomitant]
     Route: 048
  6. PROMETHAZINE [Concomitant]
     Indication: NAUSEA
     Route: 048
  7. LEVOTHYROXINE SODIUM [Concomitant]
     Route: 048

REACTIONS (4)
  - Urticaria [Recovered/Resolved]
  - Erythema [Recovered/Resolved]
  - Pruritus [Recovered/Resolved]
  - Rash [Recovered/Resolved]
